FAERS Safety Report 21283370 (Version 1)
Quarter: 2022Q3

REPORT INFORMATION
  Report Type: Report from Study
  Country: IN (occurrence: None)
  Receive Date: 20220901
  Receipt Date: 20220901
  Transmission Date: 20221027
  Serious: Yes (Hospitalization)
  Sender: FDA-Public Use
  Company Number: IN-Eisai Medical Research-EC-2022-122460

PATIENT
  Age: 67 Year
  Sex: Male

DRUGS (2)
  1. LENVIMA [Suspect]
     Active Substance: LENVATINIB
     Indication: Hepatocellular carcinoma
     Dosage: ALTERNATING DAYS 4MG/8MG
     Route: 048
     Dates: start: 202207, end: 20220828
  2. LENVIMA [Suspect]
     Active Substance: LENVATINIB
     Route: 048
     Dates: start: 20220829

REACTIONS (2)
  - Deep vein thrombosis [Recovering/Resolving]
  - Anorectal disorder [Recovering/Resolving]

NARRATIVE: CASE EVENT DATE: 20220701
